FAERS Safety Report 25254082 (Version 1)
Quarter: 2025Q2

REPORT INFORMATION
  Report Type: Spontaneous
  Country: US (occurrence: US)
  Receive Date: 20250430
  Receipt Date: 20250430
  Transmission Date: 20250717
  Serious: Yes (Life-Threatening, Hospitalization, Other)
  Sender: RANBAXY
  Company Number: US-SUN PHARMACEUTICAL INDUSTRIES LTD-2025R1-505364

PATIENT
  Age: 47 Year
  Sex: Female

DRUGS (1)
  1. SULFASALAZINE [Suspect]
     Active Substance: SULFASALAZINE
     Indication: Oesophagitis
     Route: 065

REACTIONS (3)
  - Oesophageal infection [Unknown]
  - Respiratory failure [Recovering/Resolving]
  - Stevens-Johnson syndrome [Unknown]
